FAERS Safety Report 12686165 (Version 1)
Quarter: 2016Q3

REPORT INFORMATION
  Report Type: Report from Study
  Country: JP (occurrence: JP)
  Receive Date: 20160825
  Receipt Date: 20160825
  Transmission Date: 20161109
  Serious: Yes (Hospitalization)
  Sender: FDA-Public Use
  Company Number: JP-EISAI MEDICAL RESEARCH-EC-2016-019716

PATIENT
  Age: 80 Year
  Sex: Male

DRUGS (10)
  1. NU-LOTAN [Concomitant]
     Active Substance: LOSARTAN POTASSIUM
  2. LAC-B [Concomitant]
     Active Substance: BIFIDOBACTERIUM SPP.
  3. DOGMATYL [Concomitant]
     Active Substance: SULPIRIDE
  4. MENESIT [Concomitant]
     Active Substance: CARBIDOPA\LEVODOPA
  5. ARICEPT [Suspect]
     Active Substance: DONEPEZIL HYDROCHLORIDE
     Indication: DEMENTIA WITH LEWY BODIES
     Route: 048
     Dates: start: 20151019, end: 20151102
  6. ARICEPT [Suspect]
     Active Substance: DONEPEZIL HYDROCHLORIDE
     Route: 048
     Dates: start: 20151103, end: 20160218
  7. LAMISIL [Concomitant]
     Active Substance: TERBINAFINE HYDROCHLORIDE
  8. MEXITIL [Concomitant]
     Active Substance: MEXILETINE HYDROCHLORIDE
  9. SELBEX [Concomitant]
     Active Substance: TEPRENONE
  10. PLETAAL OD [Concomitant]
     Active Substance: CILOSTAZOL

REACTIONS (1)
  - Diarrhoea [Not Recovered/Not Resolved]

NARRATIVE: CASE EVENT DATE: 20160214
